FAERS Safety Report 13128567 (Version 3)
Quarter: 2017Q1

REPORT INFORMATION
  Report Type: Spontaneous
  Country: JP (occurrence: JP)
  Receive Date: 20170118
  Receipt Date: 20170224
  Transmission Date: 20170428
  Serious: Yes (Hospitalization)
  Sender: FDA-Public Use
  Company Number: JP-AMGEN-JPNSP2016185882

PATIENT
  Age: 98 Year
  Sex: Female
  Weight: 36 kg

DRUGS (10)
  1. URSO [Concomitant]
     Active Substance: URSODIOL
     Indication: BILE DUCT STONE
     Dosage: 100 MG, TID
     Route: 048
  2. LACB-R [Concomitant]
     Indication: CONSTIPATION
     Dosage: 1 G, TID
     Route: 048
  3. GASMOTIN [Concomitant]
     Active Substance: MOSAPRIDE CITRATE
     Indication: CONSTIPATION
     Dosage: 5 MG, TID
     Route: 048
  4. ONEALFA [Concomitant]
     Active Substance: ALFACALCIDOL
     Indication: OSTEOPOROSIS
     Dosage: 1 MUG, QD
  5. FAMOTIDINE. [Concomitant]
     Active Substance: FAMOTIDINE
     Indication: GASTRIC ULCER
     Dosage: 20 MG, QD
     Route: 048
  6. NAUZELIN [Concomitant]
     Active Substance: DOMPERIDONE
     Indication: CONSTIPATION
     Dosage: 10 MG, BID
     Route: 048
  7. PRALIA [Suspect]
     Active Substance: DENOSUMAB
     Indication: OSTEOPOROSIS
     Dosage: 60 MG, Q6MO
     Route: 058
     Dates: start: 20160601
  8. LACB-R [Concomitant]
     Indication: NAUSEA
  9. NAUZELIN [Concomitant]
     Active Substance: DOMPERIDONE
     Indication: NAUSEA
  10. GASMOTIN [Concomitant]
     Active Substance: MOSAPRIDE CITRATE
     Indication: NAUSEA

REACTIONS (4)
  - Vomiting [Recovering/Resolving]
  - Hypocalcaemia [Recovered/Resolved]
  - Pneumonia aspiration [Recovering/Resolving]
  - Pneumonia aspiration [Unknown]

NARRATIVE: CASE EVENT DATE: 20161225
